FAERS Safety Report 8803508 (Version 1)
Quarter: 2012Q4

REPORT INFORMATION
  Report Type: 
  Country: ES (occurrence: ES)
  Receive Date: 20120924
  Receipt Date: 20120924
  Transmission Date: 20130627
  Serious: Yes (Other)
  Sender: FDA-Public Use
  Company Number: PHHY2012ES080265

PATIENT

DRUGS (2)
  1. IMATINIB [Suspect]
     Indication: HYPEREOSINOPHILIC SYNDROME
     Dosage: 400 mg per day
  2. PREDNISONE [Suspect]
     Indication: HYPEREOSINOPHILIC SYNDROME
     Dosage: 1 mg/kg, daily

REACTIONS (2)
  - Myocardial infarction [Unknown]
  - Therapeutic response decreased [Unknown]
